FAERS Safety Report 8392088-0 (Version None)
Quarter: 2012Q2

REPORT INFORMATION
  Report Type: 
  Country: None (occurrence: None)
  Receive Date: 20120524
  Receipt Date: 20120524
  Transmission Date: 20120825
  Serious: Yes (Other)
  Sender: FDA-Public Use
  Company Number: None

PATIENT
  Age: 54 Year
  Sex: Female
  Weight: 68.0396 kg

DRUGS (1)
  1. RETINOL [Suspect]
     Indication: SKIN WRINKLING
     Dosage: TABLESPOON DAILY EPIDURAL
     Route: 008
     Dates: start: 20110410, end: 20110424

REACTIONS (4)
  - SWELLING FACE [None]
  - PRODUCT LABEL ISSUE [None]
  - SUNBURN [None]
  - SKIN EXFOLIATION [None]
